FAERS Safety Report 25816504 (Version 2)
Quarter: 2025Q4

REPORT INFORMATION
  Report Type: Spontaneous
  Country: AR (occurrence: AR)
  Receive Date: 20250918
  Receipt Date: 20251006
  Transmission Date: 20260117
  Serious: Yes (Hospitalization, Other)
  Sender: SANDOZ
  Company Number: AR-SANDOZ-SDZ2025AR022949

PATIENT
  Age: 73 Year
  Sex: Male
  Weight: 63.7 kg

DRUGS (3)
  1. TREPROSTINIL SODIUM [Suspect]
     Active Substance: TREPROSTINIL SODIUM
     Indication: Pulmonary hypertension
     Dosage: 20 NG/KG/MIN, CONTINUOUS INFUSION
     Route: 058
     Dates: start: 20250401
  2. TREPROSTINIL SODIUM [Suspect]
     Active Substance: TREPROSTINIL SODIUM
     Dosage: 22 NG/KG/MIN, CONTINUOUS INFUSION
     Route: 058
     Dates: start: 20250401
  3. TREPROSTINIL SODIUM [Suspect]
     Active Substance: TREPROSTINIL SODIUM
     Dosage: 22 NG/KG/MIN, CONTINUOUS INFUSION
     Route: 058
     Dates: start: 20250401

REACTIONS (15)
  - Urinary tract infection [Unknown]
  - Cardiac failure [Unknown]
  - Musculoskeletal stiffness [Unknown]
  - Skin papilloma [Unknown]
  - Injection site scar [Unknown]
  - Injection site discomfort [Unknown]
  - Injection site swelling [Recovered/Resolved]
  - Injection site erythema [Unknown]
  - Injection site haemorrhage [Not Recovered/Not Resolved]
  - Infusion site inflammation [Unknown]
  - Injection site injury [Unknown]
  - Infusion site pain [Not Recovered/Not Resolved]
  - Lack of infusion site rotation [Unknown]
  - Circumstance or information capable of leading to medication error [Unknown]
  - Wrong technique in product usage process [Unknown]

NARRATIVE: CASE EVENT DATE: 20250401
